FAERS Safety Report 8596028-0 (Version None)
Quarter: 2012Q3

REPORT INFORMATION
  Report Type: 
  Country: None (occurrence: None)
  Receive Date: 20120815
  Receipt Date: 20120810
  Transmission Date: 20120928
  Serious: Yes (Other)
  Sender: FDA-Public Use
  Company Number: US-BAYER-2012-082710

PATIENT
  Age: 22 Year
  Sex: Male
  Weight: 86 kg

DRUGS (1)
  1. ALEVE (CAPLET) [Suspect]
     Indication: BACK PAIN
     Dosage: TOOK 10 TO 12 TABLETS
     Route: 048
     Dates: start: 20120809

REACTIONS (3)
  - HAEMATEMESIS [None]
  - ABDOMINAL PAIN [None]
  - VOMITING [None]
